FAERS Safety Report 9678216 (Version 1)
Quarter: 2013Q4

REPORT INFORMATION
  Report Type: Spontaneous
  Country: US (occurrence: US)
  Receive Date: 20131108
  Receipt Date: 20131108
  Transmission Date: 20140711
  Serious: Yes (Other)
  Sender: FDA-Public Use
  Company Number: US-BAYER-2013-135485

PATIENT
  Age: 91 Year
  Sex: Female
  Weight: 48 kg

DRUGS (3)
  1. ONE A DAY WOMEN^S [Suspect]
     Dosage: 1 DF, QD WITH FOOD
     Route: 048
     Dates: start: 201310
  2. FOLIC ACID [Concomitant]
  3. BAYER ASPIRIN REGIMEN ADULT LOW STRENGTH [Concomitant]
     Indication: ISCHAEMIC HEART DISEASE PROPHYLAXIS
     Dosage: 1 DF, QD
     Route: 048

REACTIONS (3)
  - Choking [Recovered/Resolved]
  - Haematemesis [Recovered/Resolved]
  - Wrong technique in drug usage process [None]
